FAERS Safety Report 4405077-5 (Version None)
Quarter: 2004Q3

REPORT INFORMATION
  Report Type: 
  Country: None (occurrence: None)
  Receive Date: 20040715
  Receipt Date: 20040630
  Transmission Date: 20050211
  Serious: Yes (Hospitalization, Other)
  Sender: FDA-Public Use
  Company Number: 197332

PATIENT
  Sex: Female
  Weight: 118.8424 kg

DRUGS (13)
  1. AVONEX [Suspect]
     Indication: MULTIPLE SCLEROSIS
     Dosage: 30 MCG QW IM
     Route: 030
     Dates: start: 19970625
  2. AVONEX [Suspect]
     Indication: MULTIPLE SCLEROSIS
     Dosage: 30 MCG QW IM
     Route: 030
  3. PREMARIN [Concomitant]
  4. DETROL [Concomitant]
  5. TEGRETOL [Concomitant]
  6. NEXIUM [Concomitant]
  7. NEURONTIN [Concomitant]
  8. NEFAZODONE HCL [Concomitant]
  9. DILAUDID [Concomitant]
  10. AMBIEN [Concomitant]
  11. SENNA [Concomitant]
  12. DOCUSATE CALCIUM [Concomitant]
  13. ZYRTEC [Concomitant]

REACTIONS (8)
  - ASTHMA [None]
  - BLOOD POTASSIUM DECREASED [None]
  - BLOOD SODIUM DECREASED [None]
  - CHRONIC OBSTRUCTIVE AIRWAYS DISEASE [None]
  - FLUID RETENTION [None]
  - MULTIPLE SCLEROSIS [None]
  - POLYURIA [None]
  - RESPIRATORY FAILURE [None]
